FAERS Safety Report 23670407 (Version 1)
Quarter: 2024Q1

REPORT INFORMATION
  Report Type: Spontaneous
  Country: US (occurrence: US)
  Receive Date: 20240325
  Receipt Date: 20240325
  Transmission Date: 20240410
  Serious: No
  Sender: FDA-Public Use
  Company Number: US-009507513-2403USA008194

PATIENT
  Age: 19 Year
  Sex: Male

DRUGS (6)
  1. TEMODAR [Suspect]
     Active Substance: TEMOZOLOMIDE
     Indication: Metastases to pleura
     Dosage: UNK
     Route: 048
  2. TEMODAR [Suspect]
     Active Substance: TEMOZOLOMIDE
     Indication: Pleural effusion
  3. IRINOTECAN [Concomitant]
     Active Substance: IRINOTECAN
     Indication: Metastases to pleura
     Dosage: UNK
  4. IRINOTECAN [Concomitant]
     Active Substance: IRINOTECAN
     Indication: Pleural effusion
  5. VINCRISTINE [Concomitant]
     Active Substance: VINCRISTINE
     Indication: Metastases to pleura
     Dosage: UNK
  6. VINCRISTINE [Concomitant]
     Active Substance: VINCRISTINE
     Indication: Pleural effusion

REACTIONS (1)
  - Product use in unapproved indication [Unknown]
